FAERS Safety Report 11273391 (Version 1)
Quarter: 2015Q3

REPORT INFORMATION
  Report Type: Spontaneous
  Country: US (occurrence: US)
  Receive Date: 20150715
  Receipt Date: 20150715
  Transmission Date: 20151125
  Serious: No
  Sender: FDA-Public Use
  Company Number: US-BAUSCH-BL-2014-003698

PATIENT
  Age: 68 Year
  Sex: Female

DRUGS (3)
  1. BESIVANCE [Suspect]
     Active Substance: BESIFLOXACIN
     Indication: CATARACT OPERATION
     Route: 047
     Dates: start: 20140714
  2. NEVANAC [Interacting]
     Active Substance: NEPAFENAC
     Indication: CATARACT OPERATION
     Dates: start: 20140714
  3. DUREZOL [Interacting]
     Active Substance: DIFLUPREDNATE
     Indication: CATARACT OPERATION
     Dates: start: 20140714

REACTIONS (8)
  - Eye discharge [Not Recovered/Not Resolved]
  - Dyspnoea [Not Recovered/Not Resolved]
  - Off label use [Unknown]
  - Eye irritation [Not Recovered/Not Resolved]
  - Eye swelling [Not Recovered/Not Resolved]
  - Nausea [Not Recovered/Not Resolved]
  - Skin discolouration [Not Recovered/Not Resolved]
  - Vision blurred [Not Recovered/Not Resolved]

NARRATIVE: CASE EVENT DATE: 201407
